FAERS Safety Report 5924614-2 (Version None)
Quarter: 2008Q4

REPORT INFORMATION
  Report Type: 
  Country: None (occurrence: None)
  Receive Date: 20081016
  Receipt Date: 20081002
  Transmission Date: 20090506
  Serious: Yes (Death, Hospitalization, Other)
  Sender: FDA-Public Use
  Company Number: FACT0800080

PATIENT
  Age: 59 Year
  Sex: Male

DRUGS (5)
  1. FACTIVE [Suspect]
     Indication: BRONCHITIS
  2. LIPITOR [Concomitant]
  3. GUAIFENESIN + DEXTROMETHORPANE HBR (DEXTROMETHORPHAN HYDROBROMIDE, GUA [Concomitant]
  4. METHYLPREDNISOLONE 16MG TAB [Concomitant]
  5. MULTIVITAMIN [Concomitant]

REACTIONS (7)
  - ACUTE RESPIRATORY DISTRESS SYNDROME [None]
  - NO THERAPEUTIC RESPONSE [None]
  - PNEUMONIA PNEUMOCOCCAL [None]
  - PULMONARY OEDEMA [None]
  - REFUSAL OF TREATMENT BY PATIENT [None]
  - RENAL FAILURE ACUTE [None]
  - SEPSIS [None]
